FAERS Safety Report 14935879 (Version 4)
Quarter: 2018Q3

REPORT INFORMATION
  Report Type: Report from Study
  Country: US (occurrence: US)
  Receive Date: 20180524
  Receipt Date: 20180822
  Transmission Date: 20181010
  Serious: Yes (Death, Hospitalization)
  Sender: FDA-Public Use
  Company Number: US-ACTELION-A-NJ2017-163582

PATIENT
  Age: 64 Year
  Sex: Female
  Weight: 95.24 kg

DRUGS (3)
  1. TRACLEER [Suspect]
     Active Substance: BOSENTAN
     Indication: PULMONARY ARTERIAL HYPERTENSION
     Dosage: 125 MG, BID
     Route: 048
  2. TYVASO [Concomitant]
     Active Substance: TREPROSTINIL
  3. REVATIO [Concomitant]
     Active Substance: SILDENAFIL CITRATE

REACTIONS (6)
  - Dyspnoea exertional [Unknown]
  - Pulmonary arterial hypertension [Fatal]
  - Dyspnoea [Unknown]
  - Nasopharyngitis [Unknown]
  - Respiratory disorder [Unknown]
  - Sarcoidosis [Unknown]
